FAERS Safety Report 25452916 (Version 3)
Quarter: 2025Q3

REPORT INFORMATION
  Report Type: Spontaneous
  Country: JP (occurrence: JP)
  Receive Date: 20250618
  Receipt Date: 20250908
  Transmission Date: 20251020
  Serious: Yes (Other)
  Sender: ASTELLAS
  Company Number: JP-ASTELLAS-2025-AER-032363

PATIENT
  Age: 9 Decade
  Sex: Male

DRUGS (4)
  1. XOSPATA [Suspect]
     Active Substance: GILTERITINIB
     Indication: Acute myeloid leukaemia
     Route: 048
     Dates: start: 202505
  2. XOSPATA [Suspect]
     Active Substance: GILTERITINIB
     Route: 048
     Dates: end: 202506
  3. VENETOCLAX [Concomitant]
     Active Substance: VENETOCLAX
     Indication: Product used for unknown indication
     Route: 065
     Dates: start: 202504
  4. AZACITIDINE [Concomitant]
     Active Substance: AZACITIDINE
     Indication: Product used for unknown indication
     Route: 065
     Dates: start: 202504

REACTIONS (1)
  - Cytopenia [Not Recovered/Not Resolved]
